FAERS Safety Report 9104409 (Version 5)
Quarter: 2014Q3

REPORT INFORMATION
  Report Type: Report from Study
  Country: CA (occurrence: CA)
  Receive Date: 20130219
  Receipt Date: 20140724
  Transmission Date: 20150326
  Serious: Yes (Other)
  Sender: FDA-Public Use
  Company Number: CA-ROCHE-1192315

PATIENT
  Age: 58 Year
  Sex: Female
  Weight: 66 kg

DRUGS (11)
  1. AVASTIN [Suspect]
     Active Substance: BEVACIZUMAB
     Route: 042
     Dates: start: 20121206
  2. KEPPRA [Concomitant]
     Active Substance: LEVETIRACETAM
  3. CLOBAZAM [Concomitant]
     Active Substance: CLOBAZAM
  4. AVASTIN [Suspect]
     Active Substance: BEVACIZUMAB
     Route: 042
     Dates: start: 20130131
  5. AVASTIN [Suspect]
     Active Substance: BEVACIZUMAB
     Route: 042
     Dates: start: 20130926, end: 20140703
  6. VAGIFEM [Concomitant]
     Active Substance: ESTRADIOL
  7. PANTOLOC [Concomitant]
     Active Substance: PANTOPRAZOLE SODIUM
  8. AVASTIN [Suspect]
     Active Substance: BEVACIZUMAB
     Indication: GLIOBLASTOMA
     Route: 042
     Dates: start: 20120803
  9. AVASTIN [Suspect]
     Active Substance: BEVACIZUMAB
     Route: 042
     Dates: start: 20121108
  10. AVASTIN [Suspect]
     Active Substance: BEVACIZUMAB
     Route: 042
     Dates: start: 20130704
  11. TEGRETOL [Concomitant]
     Active Substance: CARBAMAZEPINE

REACTIONS (13)
  - Platelet count decreased [Unknown]
  - Nasopharyngitis [Recovering/Resolving]
  - Fall [Unknown]
  - Head injury [Unknown]
  - White blood cell count decreased [Unknown]
  - Disease progression [Not Recovered/Not Resolved]
  - Blood pressure increased [Unknown]
  - Laceration [Recovering/Resolving]
  - Balance disorder [Unknown]
  - Wound [Recovered/Resolved]
  - Balance disorder [Not Recovered/Not Resolved]
  - Drug ineffective [Unknown]
  - Proteinuria [Not Recovered/Not Resolved]

NARRATIVE: CASE EVENT DATE: 2013
